FAERS Safety Report 25486105 (Version 1)
Quarter: 2025Q2

REPORT INFORMATION
  Report Type: Report from Study
  Country: CA (occurrence: CA)
  Receive Date: 20250626
  Receipt Date: 20250626
  Transmission Date: 20250717
  Serious: Yes (Other)
  Sender: GILEAD
  Company Number: CA-GILEAD-2025-0710076

PATIENT
  Sex: Female

DRUGS (9)
  1. SACITUZUMAB GOVITECAN-HZIY [Suspect]
     Active Substance: SACITUZUMAB GOVITECAN-HZIY
     Indication: Hormone receptor positive HER2 negative breast cancer
     Route: 042
     Dates: start: 20241028, end: 20250527
  2. SACITUZUMAB GOVITECAN-HZIY [Suspect]
     Active Substance: SACITUZUMAB GOVITECAN-HZIY
     Route: 042
     Dates: start: 20250401
  3. SACITUZUMAB GOVITECAN-HZIY [Suspect]
     Active Substance: SACITUZUMAB GOVITECAN-HZIY
     Route: 042
     Dates: start: 20250408
  4. CAPECITABINE [Concomitant]
     Active Substance: CAPECITABINE
  5. ENHERTU [Concomitant]
     Active Substance: FAM-TRASTUZUMAB DERUXTECAN-NXKI
  6. ERIBULIN [Concomitant]
     Active Substance: ERIBULIN
  7. PACLITAXEL [Concomitant]
     Active Substance: PACLITAXEL
  8. PALBOCICLIB [Concomitant]
     Active Substance: PALBOCICLIB
  9. TAMOXIFEN [Concomitant]
     Active Substance: TAMOXIFEN

REACTIONS (1)
  - Disease progression [Unknown]
